FAERS Safety Report 6963057-X (Version None)
Quarter: 2010Q3

REPORT INFORMATION
  Report Type: 
  Country: None (occurrence: None)
  Receive Date: 20100830
  Receipt Date: 20100819
  Transmission Date: 20110219
  Serious: No
  Sender: FDA-Public Use
  Company Number: B0584097A

PATIENT
  Age: 13 Year
  Sex: Male

DRUGS (12)
  1. PREDNISOLONE [Suspect]
     Indication: HEART TRANSPLANT
     Dosage: 2000 MG/M2
  2. TACROLIMUS [Suspect]
  3. VINCRISTINE [Suspect]
     Indication: CHEMOTHERAPY
     Dosage: 6 MG/M2
  4. RITUXAN [Suspect]
     Indication: CHEMOTHERAPY
     Dosage: 375 MG/M2
  5. ETOPOSIDE [Suspect]
     Indication: EPSTEIN-BARR VIRUS ASSOCIATED LYMPHOPROLIFERATIVE DISORDER
  6. DEXRAZOXANE [Suspect]
     Indication: CHEMOTHERAPY
  7. THIOGUANINE [Suspect]
     Dosage: 750 MG/M2
  8. CYTARABINE [Suspect]
     Dosage: 1000 MG/M2
  9. METHOTREXATE [Suspect]
     Indication: EPSTEIN-BARR VIRUS ASSOCIATED LYMPHOPROLIFERATIVE DISORDER
  10. CYCLOPHOSPHAMIDE [Suspect]
  11. CAELYX INJECTION (CAELYX) [Suspect]
     Indication: EPSTEIN-BARR VIRUS ASSOCIATED LYMPHOPROLIFERATIVE DISORDER
     Dosage: 200 MG/M2
  12. AZATHIOPRINE [Suspect]
     Indication: HEART TRANSPLANT

REACTIONS (12)
  - ABDOMINAL PAIN [None]
  - BURKITT'S LYMPHOMA [None]
  - DEVICE RELATED INFECTION [None]
  - DEVICE RELATED SEPSIS [None]
  - EPSTEIN-BARR VIRUS ASSOCIATED LYMPHOPROLIFERATIVE DISORDER [None]
  - MASS [None]
  - MUSCLE CONTRACTIONS INVOLUNTARY [None]
  - PNEUMOCYSTIS JIROVECI PNEUMONIA [None]
  - PROGRESSIVE MULTIFOCAL LEUKOENCEPHALOPATHY [None]
  - RENAL FAILURE [None]
  - STAPHYLOCOCCAL BACTERAEMIA [None]
  - TIC [None]
